FAERS Safety Report 4373175-0 (Version None)
Quarter: 2004Q2

REPORT INFORMATION
  Report Type: 
  Country: None (occurrence: None)
  Receive Date: 20040603
  Receipt Date: 20040517
  Transmission Date: 20050107
  Serious: Yes (Other)
  Sender: FDA-Public Use
  Company Number: US_0403101549

PATIENT
  Age: 61 Year
  Sex: Male
  Weight: 98 kg

DRUGS (3)
  1. GLUCAGON [Suspect]
     Indication: DIABETES MELLITUS
     Dates: start: 19740101
  2. HUMULIN R [Suspect]
     Indication: DIABETES MELLITUS
  3. LANTUS [Concomitant]

REACTIONS (3)
  - COMA [None]
  - MEDICATION ERROR [None]
  - PHARMACEUTICAL PRODUCT COMPLAINT [None]
